APPROVED DRUG PRODUCT: DESFLURANE
Active Ingredient: DESFLURANE
Strength: 100%
Dosage Form/Route: LIQUID;INHALATION
Application: A208234 | Product #001 | TE Code: AN
Applicant: SHANGHAI HENGRUI PHARMACEUTICAL CO LTD
Approved: Feb 26, 2018 | RLD: No | RS: No | Type: RX